FAERS Safety Report 9096500 (Version 2)
Quarter: 2013Q1

REPORT INFORMATION
  Report Type: Spontaneous
  Country: BR (occurrence: BR)
  Receive Date: 20130211
  Receipt Date: 20130312
  Transmission Date: 20140127
  Serious: Yes (Hospitalization, Other)
  Sender: FDA-Public Use
  Company Number: BR-AMGEN-BRASP2013004832

PATIENT
  Age: 54 Year
  Sex: Female
  Weight: 55 kg

DRUGS (8)
  1. ENBREL [Suspect]
     Indication: RHEUMATOID ARTHRITIS
     Dosage: 50 MG, 1X/WEEK
     Dates: start: 2012, end: 20121220
  2. ENBREL [Suspect]
     Dosage: UNK
     Dates: start: 201002
  3. PREDNISONE [Concomitant]
     Dosage: UNK
  4. METHOTREXATE [Concomitant]
     Dosage: UNK
  5. IBUPROFEN [Concomitant]
     Dosage: UNK
  6. HYDROCHLOROTHIAZIDE [Concomitant]
     Dosage: UNK
  7. CAPTOPRIL [Concomitant]
     Dosage: UNK
  8. MOVATEC [Concomitant]
     Indication: PAIN
     Dosage: UNSPECIFIED DOSE, AS NEEDED

REACTIONS (6)
  - Pain [Unknown]
  - Abasia [Unknown]
  - Weight decreased [Unknown]
  - Injection site erythema [Unknown]
  - Injection site pruritus [Unknown]
  - Erysipelas [Unknown]
